FAERS Safety Report 8857471 (Version 1)
Quarter: 2012Q4

REPORT INFORMATION
  Report Type: 
  Country: US (occurrence: US)
  Receive Date: 20121024
  Receipt Date: 20121024
  Transmission Date: 20130627
  Serious: No
  Sender: FDA-Public Use
  Company Number: US-ROCHE-GNE241984

PATIENT
  Sex: Female
  Weight: 83.54 kg

DRUGS (3)
  1. RAPTIVA [Suspect]
     Indication: PSORIASIS
     Dosage: 0.8 mL, UNK
     Route: 058
  2. RAPTIVA [Suspect]
     Indication: PUSTULAR PSORIASIS
  3. TRAMADOL [Concomitant]

REACTIONS (4)
  - Lymphocyte count increased [Unknown]
  - Laryngitis [Unknown]
  - Skin plaque [Unknown]
  - Anxiety [Unknown]
